FAERS Safety Report 16972094 (Version 2)
Quarter: 2019Q4

REPORT INFORMATION
  Report Type: Spontaneous
  Country: US (occurrence: US)
  Receive Date: 20191029
  Receipt Date: 20191118
  Transmission Date: 20200122
  Serious: Yes (Life-Threatening, Hospitalization)
  Sender: FDA-Public Use
  Company Number: US-TEVA-2019-US-1128792

PATIENT
  Age: 45 Year
  Sex: Male

DRUGS (3)
  1. AMLODIPINE [Suspect]
     Active Substance: AMLODIPINE BESYLATE
     Indication: SUICIDE ATTEMPT
     Route: 048
  2. CALCIUM [Suspect]
     Active Substance: CALCIUM
     Indication: HYPOTENSION
     Route: 065
  3. GLUCAGON. [Suspect]
     Active Substance: GLUCAGON
     Indication: HYPOTENSION
     Route: 065

REACTIONS (6)
  - Hypotension [Recovering/Resolving]
  - Suicide attempt [Recovering/Resolving]
  - Treatment failure [Recovering/Resolving]
  - Lethargy [Recovering/Resolving]
  - Toxicity to various agents [Recovering/Resolving]
  - Blood creatinine increased [Recovering/Resolving]
